FAERS Safety Report 9972388 (Version 1)
Quarter: 2014Q1

REPORT INFORMATION
  Report Type: Report from Study
  Country: US (occurrence: US)
  Receive Date: 20140306
  Receipt Date: 20140306
  Transmission Date: 20141002
  Serious: No
  Sender: FDA-Public Use
  Company Number: US-ABBVIE-13P-163-1148802-00

PATIENT
  Age: 56 Year
  Sex: Female

DRUGS (8)
  1. HUMIRA [Suspect]
     Indication: RHEUMATOID ARTHRITIS
     Dates: start: 201308
  2. MORPHINE [Concomitant]
     Indication: BACK PAIN
     Route: 048
  3. OXYBUTYNIN [Concomitant]
     Indication: HYPERTENSION
     Dosage: 5 MG DAILY
     Route: 048
  4. TIZANIDINE [Concomitant]
     Indication: MUSCLE RELAXANT THERAPY
     Route: 048
  5. VENLAFAXINE [Concomitant]
     Indication: PAIN
     Dosage: AT BEDTIME
     Route: 048
  6. OMEPRAZOLE [Concomitant]
     Indication: GASTROOESOPHAGEAL REFLUX DISEASE
     Dosage: IN MORNING 30 MINUTES BEFORE SHE EATS
     Route: 048
  7. ASA [Concomitant]
     Indication: CARDIOVASCULAR EVENT PROPHYLAXIS
     Dosage: 81 MG DAILY
     Route: 048
  8. MELOXICAM [Concomitant]
     Indication: ARTHRALGIA
     Dosage: 5 MG DAILY WITH FOOD
     Route: 048

REACTIONS (2)
  - Sputum discoloured [Not Recovered/Not Resolved]
  - Cough [Not Recovered/Not Resolved]
